FAERS Safety Report 25548817 (Version 1)
Quarter: 2025Q3

REPORT INFORMATION
  Report Type: Spontaneous
  Country: JP (occurrence: JP)
  Receive Date: 20250714
  Receipt Date: 20250714
  Transmission Date: 20251021
  Serious: Yes (Life-Threatening, Hospitalization, Other)
  Sender: CHEPLAPHARM
  Company Number: JP-CP_KK-2025JP004153

PATIENT
  Age: 22 Year
  Sex: Female

DRUGS (2)
  1. OLANZAPINE [Suspect]
     Active Substance: OLANZAPINE
     Indication: Restlessness
     Route: 048
  2. QUETIAPINE [Suspect]
     Active Substance: QUETIAPINE
     Indication: Restlessness
     Route: 048

REACTIONS (6)
  - Pulmonary embolism [Unknown]
  - Pneumonia influenzal [Unknown]
  - Acute respiratory failure [Unknown]
  - Atelectasis [Unknown]
  - Cardiac arrest [Unknown]
  - Off label use [Recovered/Resolved]
